FAERS Safety Report 24419582 (Version 5)
Quarter: 2024Q4

REPORT INFORMATION
  Report Type: Spontaneous
  Country: US (occurrence: US)
  Receive Date: 20241010
  Receipt Date: 20241111
  Transmission Date: 20250115
  Serious: No
  Sender: SANDOZ
  Company Number: US-SANDOZ-SDZ2024US085578

PATIENT
  Sex: Female
  Weight: 54.42 kg

DRUGS (1)
  1. COMBIPATCH [Suspect]
     Active Substance: ESTRADIOL\NORETHINDRONE ACETATE
     Indication: Postmenopause
     Dosage: 0.05/0.25 MG, UNKNOWN
     Route: 062
     Dates: start: 2024

REACTIONS (4)
  - Blood oestrogen decreased [Unknown]
  - Vulvovaginal burning sensation [Recovered/Resolved]
  - Postmenopausal haemorrhage [Recovered/Resolved]
  - Therapeutic product effect incomplete [Not Recovered/Not Resolved]

NARRATIVE: CASE EVENT DATE: 20240101
